FAERS Safety Report 17195633 (Version 1)
Quarter: 2020Q1

REPORT INFORMATION
  Report Type: Spontaneous
  Country: US (occurrence: US)
  Receive Date: 20191223
  Receipt Date: 20191223
  Transmission Date: 20200409
  Serious: No
  Sender: FDA-Public Use
  Company Number: None

PATIENT
  Age: 53 Year
  Sex: Female

DRUGS (6)
  1. PREDNISONE TAB 5MG [Concomitant]
     Active Substance: PREDNISONE
     Dates: start: 20171027
  2. MAVENCLAD [Suspect]
     Active Substance: CLADRIBINE
     Indication: MULTIPLE SCLEROSIS
     Route: 048
     Dates: start: 20191130
  3. AMPYRA TAB 10MG [Concomitant]
     Dates: start: 20180301
  4. METHIMAZOLE TAB 5MG [Concomitant]
     Dates: start: 20180802
  5. PROVIGIL TAB 200MG [Concomitant]
     Dates: start: 20180104
  6. LYRICA CAP 25MG [Concomitant]
     Dates: start: 20171027

REACTIONS (2)
  - Headache [None]
  - Feeling abnormal [None]

NARRATIVE: CASE EVENT DATE: 20191130
